FAERS Safety Report 5568725-2 (Version None)
Quarter: 2007Q4

REPORT INFORMATION
  Report Type: 
  Country: None (occurrence: None)
  Receive Date: 20071220
  Receipt Date: 20070605
  Transmission Date: 20080405
  Serious: No
  Sender: FDA-Public Use
  Company Number: A0630224A

PATIENT
  Age: 29 Year
  Sex: Female

DRUGS (2)
  1. AVODART [Suspect]
     Indication: ACCIDENTAL EXPOSURE
     Dosage: .5MG UNKNOWN
     Route: 048
     Dates: start: 20061204
  2. PRENATAL VITAMINS [Concomitant]

REACTIONS (3)
  - ACCIDENTAL EXPOSURE [None]
  - DRUG EXPOSURE DURING PREGNANCY [None]
  - PHARMACEUTICAL PRODUCT COMPLAINT [None]
